FAERS Safety Report 6358044-9 (Version None)
Quarter: 2009Q3

REPORT INFORMATION
  Report Type: 
  Country: None (occurrence: None)
  Receive Date: 20090916
  Receipt Date: 20090908
  Transmission Date: 20100115
  Serious: Yes (Death)
  Sender: FDA-Public Use
  Company Number: A0803406A

PATIENT
  Sex: Male

DRUGS (3)
  1. PAXIL [Suspect]
     Indication: DRUG USE FOR UNKNOWN INDICATION
  2. BUPROPION HCL [Suspect]
     Indication: ANXIETY
     Route: 048
  3. FLUOXETINE [Suspect]
     Indication: ANXIETY
     Route: 048

REACTIONS (2)
  - COMPLETED SUICIDE [None]
  - SEROTONIN SYNDROME [None]
